FAERS Safety Report 16799246 (Version 1)
Quarter: 2019Q3

REPORT INFORMATION
  Report Type: Spontaneous
  Country: US (occurrence: US)
  Receive Date: 20190912
  Receipt Date: 20190912
  Transmission Date: 20191005
  Serious: No
  Sender: FDA-Public Use
  Company Number: US-PFIZER INC-2019393199

PATIENT
  Age: 62 Year

DRUGS (3)
  1. NEURONTIN [Suspect]
     Active Substance: GABAPENTIN
     Dosage: 800 MG, UNK
  2. NEURONTIN [Suspect]
     Active Substance: GABAPENTIN
     Dosage: 2 DF, 1X/DAY (2 OF THEM EVERY NIGHT)
  3. NEURONTIN [Suspect]
     Active Substance: GABAPENTIN
     Dosage: 200 MG, UNK

REACTIONS (1)
  - Drug ineffective [Unknown]
